FAERS Safety Report 12093781 (Version 1)
Quarter: 2016Q1

REPORT INFORMATION
  Report Type: Spontaneous
  Country: US (occurrence: None)
  Receive Date: 20160218
  Receipt Date: 20160218
  Transmission Date: 20160526
  Serious: Yes (Other)
  Sender: FDA-Public Use
  Company Number: None

PATIENT
  Age: 52 Year
  Sex: Female

DRUGS (1)
  1. ENBREL [Suspect]
     Active Substance: ETANERCEPT
     Indication: PSORIATIC ARTHROPATHY
     Dosage: 1 VIAL 2 X WEEK SUBCUTANEOUS
     Route: 058
     Dates: start: 20141001, end: 20160217

REACTIONS (1)
  - Breast cancer [None]

NARRATIVE: CASE EVENT DATE: 20151201
